FAERS Safety Report 18209264 (Version 1)
Quarter: 2020Q3

REPORT INFORMATION
  Report Type: Spontaneous
  Country: US (occurrence: US)
  Receive Date: 20200828
  Receipt Date: 20200828
  Transmission Date: 20201103
  Serious: No
  Sender: FDA-Public Use
  Company Number: US-GRAVITI PHARMACEUTICALS PRIVATE LIMITED-2089149

PATIENT
  Age: 71 Year
  Sex: Male
  Weight: 81.82 kg

DRUGS (1)
  1. ATORVASTATIN CALCIUM. [Suspect]
     Active Substance: ATORVASTATIN CALCIUM
     Indication: BLOOD CHOLESTEROL INCREASED
     Route: 048

REACTIONS (2)
  - Contusion [Not Recovered/Not Resolved]
  - Product substitution issue [Not Recovered/Not Resolved]
